FAERS Safety Report 7009374-9 (Version None)
Quarter: 2010Q3

REPORT INFORMATION
  Report Type: 
  Country: None (occurrence: None)
  Receive Date: 20100923
  Receipt Date: 20100914
  Transmission Date: 20110219
  Serious: Yes (Other)
  Sender: FDA-Public Use
  Company Number: US-ELI_LILLY_AND_COMPANY-US201009004037

PATIENT
  Sex: Female

DRUGS (3)
  1. HUMATROPE [Suspect]
     Dosage: 0.6 MG, UNK
  2. HUMATROPE [Suspect]
     Dosage: 1.2 MG, UNK
  3. HUMATROPE [Suspect]
     Dosage: 0.8 MG, UNK

REACTIONS (4)
  - FEELING ABNORMAL [None]
  - GLUCOSE TOLERANCE IMPAIRED [None]
  - NEUROPATHY PERIPHERAL [None]
  - OEDEMA PERIPHERAL [None]
